FAERS Safety Report 5491114-6 (Version None)
Quarter: 2007Q4

REPORT INFORMATION
  Report Type: 
  Country: None (occurrence: None)
  Receive Date: 20071019
  Receipt Date: 20071010
  Transmission Date: 20080405
  Serious: Yes (Death, Other)
  Sender: FDA-Public Use
  Company Number: US-PFIZER INC-2007081723

PATIENT
  Sex: Female
  Weight: 43.5 kg

DRUGS (5)
  1. CHANTIX [Suspect]
     Indication: SMOKING CESSATION THERAPY
  2. METHADONE HCL [Concomitant]
  3. ZANAFLEX [Concomitant]
  4. DIAZEPAM [Concomitant]
  5. CLONAZEPAM [Concomitant]

REACTIONS (1)
  - COMPLETED SUICIDE [None]
